FAERS Safety Report 8846993 (Version 2)
Quarter: 2014Q3

REPORT INFORMATION
  Report Type: Spontaneous
  Country: US (occurrence: US)
  Receive Date: 20121018
  Receipt Date: 20140813
  Transmission Date: 20150326
  Serious: Yes (Hospitalization, Other)
  Sender: FDA-Public Use
  Company Number: US-009507513-2009-198567-NL

PATIENT
  Sex: Female
  Weight: 69.4 kg

DRUGS (4)
  1. MIRENA [Suspect]
     Active Substance: LEVONORGESTREL
     Indication: CONTRACEPTION
     Dates: start: 20091229
  2. CEPHALEXIN. [Concomitant]
     Active Substance: CEPHALEXIN
     Indication: BACTERIAL INFECTION
     Dosage: 500 MG, UNK
     Dates: start: 20080721, end: 20080801
  3. AMITRIPTYLINE HYDROCHLORIDE. [Concomitant]
     Active Substance: AMITRIPTYLINE HYDROCHLORIDE
     Indication: ANTIDEPRESSANT THERAPY
     Dosage: 10 MG, UNK
     Dates: start: 20080730, end: 20090101
  4. NUVARING [Suspect]
     Active Substance: ETHINYL ESTRADIOL\ETONOGESTREL
     Indication: CONTRACEPTION
     Dates: start: 20061221, end: 2008

REACTIONS (28)
  - Pyrexia [Unknown]
  - Unintended pregnancy [Recovered/Resolved]
  - Pneumonia [Unknown]
  - Bronchitis [Unknown]
  - Menstruation delayed [Unknown]
  - Myocardial infarction [Unknown]
  - Pulmonary embolism [Unknown]
  - Cough [Unknown]
  - Vaginal cyst [Unknown]
  - Menorrhagia [Unknown]
  - Metrorrhagia [Unknown]
  - Bacterial vaginosis [Unknown]
  - Chest pain [Unknown]
  - Cardiac failure congestive [Unknown]
  - Musculoskeletal pain [Unknown]
  - Viral upper respiratory tract infection [Unknown]
  - Dysmenorrhoea [Unknown]
  - Nausea [Unknown]
  - Nodule [Unknown]
  - Pain in extremity [Unknown]
  - Pain in extremity [Unknown]
  - Fluid overload [Unknown]
  - Pelvic pain [Unknown]
  - Depressed mood [Unknown]
  - Migraine [Not Recovered/Not Resolved]
  - Gastroenteritis [Unknown]
  - Urinary tract infection [Unknown]
  - Dyspareunia [Unknown]

NARRATIVE: CASE EVENT DATE: 2007
